FAERS Safety Report 9518217 (Version 2)
Quarter: 2014Q1

REPORT INFORMATION
  Report Type: Spontaneous
  Country: US (occurrence: None)
  Receive Date: 20130305
  Receipt Date: 20140306
  Transmission Date: 20141002
  Serious: Yes (Other)
  Sender: FDA-Public Use
  Company Number: 163-21880-12070792

PATIENT
  Age: 69 Year
  Sex: Male
  Weight: 112.04 kg

DRUGS (14)
  1. REVLIMID (LENALIDOMIDE) [Suspect]
     Indication: PLASMA CELL MYELOMA
     Dosage: 15 MG, 21 IN 28 D, PO
     Route: 048
     Dates: start: 20120712
  2. AMBIEN [Concomitant]
  3. ASPIRIN [Concomitant]
  4. ATENOLOL [Concomitant]
  5. BENEFIBER [Concomitant]
  6. COZAAR [Concomitant]
  7. DEXAMETHASONE [Concomitant]
  8. MIRALAX [Concomitant]
  9. NEXIUM [Concomitant]
  10. SIMETHICONE [Concomitant]
  11. ZOCOR [Concomitant]
  12. AUGMENTIN (CLAVULIN) CAPSULES [Suspect]
     Indication: EAR DISCOMFORT
     Dates: start: 20120707
  13. ACYCLOVIR (ACICLOVIR) [Concomitant]
  14. BACTRIM DS (BACTRIM) [Concomitant]

REACTIONS (5)
  - Paraesthesia [None]
  - Ear discomfort [None]
  - Tremor [None]
  - Abdominal distension [None]
  - Sinusitis [None]
